FAERS Safety Report 17945844 (Version 2)
Quarter: 2020Q2

REPORT INFORMATION
  Report Type: Spontaneous
  Country: US (occurrence: US)
  Receive Date: 20200625
  Receipt Date: 20200626
  Transmission Date: 20200714
  Serious: No
  Sender: FDA-Public Use
  Company Number: US-PFIZER INC-2019159261

PATIENT
  Age: 40 Year
  Sex: Male
  Weight: 100.06 kg

DRUGS (2)
  1. DILANTIN [Suspect]
     Active Substance: PHENYTOIN
     Indication: EPILEPSY
     Dosage: 300 MG, 2X/DAY
     Dates: start: 1994
  2. DILANTIN [Suspect]
     Active Substance: PHENYTOIN
     Dosage: 300 MG, 2X/DAY(100 MG CAPSULES, EXTENDED RELEASE, 300 MG TWO TIMES A DAY)

REACTIONS (3)
  - Product use issue [Unknown]
  - Off label use [Unknown]
  - Memory impairment [Unknown]
